FAERS Safety Report 14539363 (Version 1)
Quarter: 2018Q1

REPORT INFORMATION
  Report Type: Spontaneous
  Country: US (occurrence: US)
  Receive Date: 20180215
  Receipt Date: 20180215
  Transmission Date: 20180509
  Serious: No
  Sender: FDA-Public Use
  Company Number: None

PATIENT
  Sex: Female
  Weight: 67.5 kg

DRUGS (7)
  1. RETIN-A [Concomitant]
     Active Substance: TRETINOIN
  2. TYLENOL [Concomitant]
     Active Substance: ACETAMINOPHEN
  3. MAGNESIUM SUPPLEMENTS [Concomitant]
     Active Substance: MAGNESIUM
  4. DULOXETINE. [Suspect]
     Active Substance: DULOXETINE
     Indication: FIBROMYALGIA
     Dosage: ?          QUANTITY:1 CAPSULE(S);?
     Route: 048
     Dates: start: 20161101
  5. FLONASE [Concomitant]
     Active Substance: FLUTICASONE PROPIONATE
  6. FISH OIL SUPPLEMENTS [Concomitant]
     Active Substance: FISH OIL
  7. DULOXETINE. [Concomitant]
     Active Substance: DULOXETINE

REACTIONS (4)
  - Vertigo [None]
  - Suicidal ideation [None]
  - Nausea [None]
  - Withdrawal syndrome [None]

NARRATIVE: CASE EVENT DATE: 20180215
